FAERS Safety Report 15672919 (Version 1)
Quarter: 2018Q4

REPORT INFORMATION
  Report Type: Report from Study
  Country: US (occurrence: US)
  Receive Date: 20181129
  Receipt Date: 20181129
  Transmission Date: 20190205
  Serious: Yes (Death, Life-Threatening, Hospitalization)
  Sender: FDA-Public Use
  Company Number: US-TEVA-2018-US-979392

PATIENT
  Age: 49 Year
  Sex: Female
  Weight: 96.7 kg

DRUGS (21)
  1. METHYLPREDNISOLONE. [Suspect]
     Active Substance: METHYLPREDNISOLONE
     Dosage: 128 MILLIGRAM DAILY;
     Route: 042
     Dates: start: 20180829, end: 20180831
  2. METHYLPREDNISOLONE. [Suspect]
     Active Substance: METHYLPREDNISOLONE
     Dosage: 160 MILLIGRAM DAILY;
     Route: 042
     Dates: start: 20180816, end: 20180819
  3. FAMOTIOINE [Concomitant]
     Route: 065
     Dates: start: 20180712, end: 20180909
  4. FLUCONAZOLE. [Concomitant]
     Active Substance: FLUCONAZOLE
     Route: 065
     Dates: start: 20180712, end: 20180909
  5. SIROLIMUS. [Concomitant]
     Active Substance: SIROLIMUS
     Route: 065
     Dates: start: 20180825, end: 20180909
  6. METHYLPREDNISOLONE. [Suspect]
     Active Substance: METHYLPREDNISOLONE
     Dosage: 80 MILLIGRAM DAILY;
     Route: 042
     Dates: start: 20180825, end: 20180829
  7. METHYLPREDNISOLONE. [Suspect]
     Active Substance: METHYLPREDNISOLONE
     Dosage: 40 MILLIGRAM DAILY;
     Route: 042
     Dates: start: 20180906, end: 20180910
  8. LETERMOVIR [Concomitant]
     Active Substance: LETERMOVIR
     Route: 065
     Dates: start: 20180706, end: 20180909
  9. METHYLPREDNISOLONE. [Suspect]
     Active Substance: METHYLPREDNISOLONE
     Indication: ACUTE GRAFT VERSUS HOST DISEASE
     Dosage: 80 MILLIGRAM DAILY;
     Route: 042
     Dates: start: 20180815, end: 20180815
  10. METHYLPREDNISOLONE. [Suspect]
     Active Substance: METHYLPREDNISOLONE
     Dosage: 104 MILLIGRAM DAILY;
     Route: 042
     Dates: start: 20180901, end: 20180903
  11. VALACYCLOVIR [Concomitant]
     Active Substance: VALACYCLOVIR HYDROCHLORIDE
     Route: 065
     Dates: start: 20180720, end: 20180909
  12. METHYLPREDNISOLONE. [Suspect]
     Active Substance: METHYLPREDNISOLONE
     Dosage: 128 MILLIGRAM DAILY;
     Route: 042
     Dates: start: 20180819, end: 20180821
  13. METHYLPREDNISOLONE. [Suspect]
     Active Substance: METHYLPREDNISOLONE
     Dosage: 104 MILLIGRAM DAILY;
     Route: 042
     Dates: start: 20180822, end: 20180825
  14. AMLODIPINE [Concomitant]
     Active Substance: AMLODIPINE BESYLATE
     Route: 065
     Dates: start: 20180816, end: 20180821
  15. OLANZAPINE. [Concomitant]
     Active Substance: OLANZAPINE
     Route: 065
     Dates: start: 20180709, end: 20180909
  16. METHYLPREDNISOLONE. [Suspect]
     Active Substance: METHYLPREDNISOLONE
     Dosage: 80 MILLIGRAM DAILY;
     Route: 042
     Dates: start: 20180904, end: 20180906
  17. DAPSONE. [Concomitant]
     Active Substance: DAPSONE
     Route: 065
     Dates: start: 20180814, end: 20180909
  18. PROCHLORPERAZINE. [Concomitant]
     Active Substance: PROCHLORPERAZINE
     Route: 065
     Dates: start: 20180709, end: 20180909
  19. TACROLIMUS. [Concomitant]
     Active Substance: TACROLIMUS
     Route: 065
     Dates: start: 20180711, end: 20180825
  20. ITACITINIB [Suspect]
     Active Substance: ITACITINIB
     Indication: ACUTE GRAFT VERSUS HOST DISEASE
     Route: 065
     Dates: start: 20180817, end: 20180828
  21. URSODIOL. [Concomitant]
     Active Substance: URSODIOL
     Route: 065
     Dates: start: 20180706, end: 20180909

REACTIONS (5)
  - Sepsis [Recovered/Resolved]
  - Blood bilirubin increased [Fatal]
  - Mucormycosis [Fatal]
  - Encephalopathy [Recovered/Resolved]
  - Aspergillus infection [Fatal]

NARRATIVE: CASE EVENT DATE: 20180821
